FAERS Safety Report 11046894 (Version 2)
Quarter: 2016Q3

REPORT INFORMATION
  Report Type: Spontaneous
  Country: CH (occurrence: CH)
  Receive Date: 20150420
  Receipt Date: 20160810
  Transmission Date: 20161109
  Serious: Yes (Hospitalization, Other)
  Sender: FDA-Public Use
  Company Number: CH-UCBSA-2015011468

PATIENT
  Age: 59 Year
  Sex: Male

DRUGS (20)
  1. KEPPRA [Concomitant]
     Active Substance: LEVETIRACETAM
     Indication: PARTIAL SEIZURES
     Dosage: 2X/12 HOURS (INITIAL DOSE: 500 MG 2Q12H ),1500MG 2X/12 HOURS
     Route: 048
     Dates: start: 20150127, end: 20150306
  2. URBANYL [Concomitant]
     Active Substance: CLOBAZAM
     Indication: PARTIAL SEIZURES
     Dosage: 0.5 DF, 2X/DAY (BID) (10MG
     Route: 048
     Dates: start: 20150129, end: 20150204
  3. ZOFRAN [Concomitant]
     Active Substance: ONDANSETRON HYDROCHLORIDE
     Indication: CRANIOTOMY
     Dosage: 16 MG, UNK
     Route: 042
     Dates: start: 20150115, end: 20150116
  4. DISOPRIVAN [Concomitant]
     Active Substance: PROPOFOL
     Indication: CRANIOTOMY
     Dosage: 864 MG, UNK
     Route: 042
     Dates: start: 20150115, end: 20150115
  5. RIVOTRIL [Concomitant]
     Active Substance: CLONAZEPAM
     Indication: PARTIAL SEIZURES
     Dosage: 0.5 MG, DOSAGE FORM : VIALS
     Dates: start: 20150130, end: 20150130
  6. ULTIVA [Concomitant]
     Active Substance: REMIFENTANIL HYDROCHLORIDE
     Indication: CRANIOTOMY
     Dosage: 3795 ?G, UNK
     Route: 042
     Dates: start: 20150115, end: 20150115
  7. PHENHYDAN [Suspect]
     Active Substance: PHENYTOIN
     Indication: PARTIAL SEIZURES
     Dosage: 100 MG, 2X/DAY (BID)
     Route: 048
     Dates: start: 20150130, end: 20150306
  8. PHENHYDAN [Suspect]
     Active Substance: PHENYTOIN
     Indication: PARTIAL SEIZURES
     Dosage: 750 MG, UNK
     Route: 042
  9. PERFALGAN [Concomitant]
     Active Substance: ACETAMINOPHEN
     Indication: POSTOPERATIVE ANALGESIA
     Dosage: 1 G, DOSAGE FORM : INFUSION AMPOULES, BAGS
     Route: 042
     Dates: start: 201501, end: 201502
  10. PRIMPERAN [Concomitant]
     Active Substance: METOCLOPRAMIDE HYDROCHLORIDE
     Indication: PRODUCT USED FOR UNKNOWN INDICATION
     Dosage: 10 MG, UNK
     Route: 048
     Dates: start: 201501, end: 201501
  11. ZINACEF [Suspect]
     Active Substance: CEFUROXIME SODIUM
     Indication: ANTIBIOTIC PROPHYLAXIS
     Dosage: 1.5 G, 3X/DAY (TID) (ONCE EVERY 8 HOUR)
     Route: 042
     Dates: start: 20150115, end: 20150115
  12. NOVALGIN [Concomitant]
     Active Substance: METAMIZOLE SODIUM
     Indication: POSTOPERATIVE ANALGESIA
     Dosage: 500 MG, UNK
     Route: 048
     Dates: start: 201501, end: 20150311
  13. ESMERON [Concomitant]
     Active Substance: ROCURONIUM BROMIDE
     Indication: CRANIOTOMY
     Dosage: 100 MG, DOSAGE FORM : VIALS
     Route: 042
     Dates: start: 20150115, end: 20150115
  14. MANNITOL. [Concomitant]
     Active Substance: MANNITOL
     Indication: CRANIOTOMY
     Dosage: 200 ML, UNK
     Route: 042
     Dates: start: 20150115, end: 20150115
  15. RANITIDINE. [Concomitant]
     Active Substance: RANITIDINE
     Indication: PRODUCT USED FOR UNKNOWN INDICATION
  16. PANTOZOL [Suspect]
     Active Substance: PANTOPRAZOLE SODIUM
     Indication: GASTROOESOPHAGEAL REFLUX PROPHYLAXIS
     Dosage: 20 MG, ONCE DAILY (QD)
     Route: 048
     Dates: start: 201501, end: 20150309
  17. FENTANYL. [Concomitant]
     Active Substance: FENTANYL
     Indication: CRANIOTOMY
     Dosage: 650 ?G, UNK
     Route: 042
     Dates: start: 20150115, end: 20150116
  18. EPHEDRIN [Concomitant]
     Active Substance: EPHEDRINE HYDROCHLORIDE
     Indication: CRANIOTOMY
     Dosage: 10 MG, UNK
     Dates: start: 20150115, end: 20150115
  19. FRAXIPARINE [Concomitant]
     Active Substance: NADROPARIN CALCIUM
     Indication: THROMBOSIS PROPHYLAXIS
     Dosage: DOSGAE FORM : VIALS
     Route: 058
     Dates: start: 201501, end: 201501
  20. CLOBAZAM [Concomitant]
     Active Substance: CLOBAZAM
     Indication: PRODUCT USED FOR UNKNOWN INDICATION

REACTIONS (8)
  - Pyrexia [Recovered/Resolved]
  - Pruritus [Recovered/Resolved]
  - Hepatitis [Recovering/Resolving]
  - Rash maculo-papular [Recovering/Resolving]
  - Drug reaction with eosinophilia and systemic symptoms [Recovering/Resolving]
  - Eosinophilia [Recovered/Resolved]
  - Lymphocyte morphology abnormal [Recovered/Resolved]
  - Arthralgia [Recovered/Resolved]

NARRATIVE: CASE EVENT DATE: 201502
